FAERS Safety Report 10971300 (Version 1)
Quarter: 2015Q1

REPORT INFORMATION
  Report Type: Spontaneous
  Country: US (occurrence: US)
  Receive Date: 20150331
  Receipt Date: 20150331
  Transmission Date: 20150721
  Serious: No
  Sender: FDA-Public Use
  Company Number: US-BAUSCH-SYM-2014-22903

PATIENT
  Age: 42 Year
  Sex: Female

DRUGS (1)
  1. VANOS [Suspect]
     Active Substance: FLUOCINONIDE
     Indication: SKIN IRRITATION
     Route: 061
     Dates: start: 20140701, end: 20140702

REACTIONS (1)
  - Application site discolouration [Not Recovered/Not Resolved]

NARRATIVE: CASE EVENT DATE: 20140702
